FAERS Safety Report 12465665 (Version 3)
Quarter: 2016Q4

REPORT INFORMATION
  Report Type: Report from Study
  Country: None (occurrence: US)
  Receive Date: 20160614
  Receipt Date: 20161005
  Transmission Date: 20170207
  Serious: Yes (Other)
  Sender: FDA-Public Use
  Company Number: US-ABBVIE-16P-163-1647651-00

PATIENT
  Age: 27 Year
  Sex: Female
  Weight: 79.45 kg

DRUGS (2)
  1. LUPRON DEPOT [Suspect]
     Active Substance: LEUPROLIDE ACETATE
     Indication: ENDOMETRIOSIS
     Route: 050
     Dates: start: 200806, end: 200811
  2. LUPRON DEPOT [Suspect]
     Active Substance: LEUPROLIDE ACETATE
     Route: 050
     Dates: start: 20160527, end: 20160727

REACTIONS (16)
  - Pelvic pain [Not Recovered/Not Resolved]
  - Abdominal pain [Recovering/Resolving]
  - Irritability [Not Recovered/Not Resolved]
  - Appendicectomy [Recovered/Resolved]
  - Mood swings [Recovered/Resolved]
  - Decreased appetite [Recovered/Resolved]
  - Decreased appetite [Not Recovered/Not Resolved]
  - Memory impairment [Recovered/Resolved]
  - Adverse drug reaction [Unknown]
  - Irritability [Recovered/Resolved]
  - Laparoscopy [Recovered/Resolved]
  - Drug ineffective [Recovered/Resolved]
  - Endometriosis [Recovered/Resolved]
  - Mood swings [Not Recovered/Not Resolved]
  - Mental impairment [Recovered/Resolved]
  - Arthralgia [Recovering/Resolving]

NARRATIVE: CASE EVENT DATE: 2012
